FAERS Safety Report 9206225 (Version 1)
Quarter: 2013Q2

REPORT INFORMATION
  Report Type: Spontaneous
  Country: US (occurrence: None)
  Receive Date: 20130401
  Receipt Date: 20130401
  Transmission Date: 20140414
  Serious: Yes (Hospitalization)
  Sender: FDA-Public Use
  Company Number: None

PATIENT
  Age: 3 Year
  Sex: Female
  Weight: 13 kg

DRUGS (7)
  1. CYCLOPHOSPHAMIDE [Suspect]
     Dates: end: 20121210
  2. DEXAMETHASONE [Suspect]
     Dates: end: 20121127
  3. DOXORUBICIN HYDROCHLORIDE [Suspect]
     Dates: end: 20121121
  4. ETOPOSIDE (VP-16) [Suspect]
     Dates: end: 20121210
  5. METHOTREXATE [Suspect]
     Dates: end: 20121213
  6. ONCASPAR [Suspect]
     Dates: end: 20121220
  7. VINCRISTINE SULFATE [Suspect]
     Dates: end: 20121227

REACTIONS (6)
  - Pancytopenia [None]
  - Pyrexia [None]
  - Ascites [None]
  - Respiratory syncytial virus infection [None]
  - Hypertension [None]
  - Pericardial effusion [None]
